FAERS Safety Report 11691059 (Version 1)
Quarter: 2015Q4

REPORT INFORMATION
  Report Type: Spontaneous
  Country: US (occurrence: US)
  Receive Date: 20151102
  Receipt Date: 20151102
  Transmission Date: 20160304
  Serious: No
  Sender: FDA-Public Use
  Company Number: US-TAKEDA-2015TUS015049

PATIENT
  Sex: Female

DRUGS (1)
  1. ENTYVIO [Suspect]
     Active Substance: VEDOLIZUMAB
     Indication: PRODUCT USED FOR UNKNOWN INDICATION
     Dosage: 300 MG, UNK
     Route: 042
     Dates: start: 2014

REACTIONS (6)
  - Dysgraphia [Unknown]
  - Influenza [Unknown]
  - Cerebral disorder [Unknown]
  - Stress [Unknown]
  - Emotional disorder [Unknown]
  - Mood swings [Unknown]

NARRATIVE: CASE EVENT DATE: 20151001
